FAERS Safety Report 4405178-1 (Version None)
Quarter: 2004Q3

REPORT INFORMATION
  Report Type: 
  Country: None (occurrence: None)
  Receive Date: 20040723
  Receipt Date: 20040712
  Transmission Date: 20050211
  Serious: Yes (Other)
  Sender: FDA-Public Use
  Company Number: US-BRISTOL-MYERS SQUIBB COMPANY-12646147

PATIENT
  Age: 48 Year
  Sex: Female

DRUGS (11)
  1. SERZONE [Suspect]
     Dates: start: 19970305, end: 19970930
  2. DURACT [Suspect]
     Dates: start: 19970901
  3. QUESTRAN [Concomitant]
  4. PREMARIN [Concomitant]
  5. PHAZYME [Concomitant]
  6. INDERAL LA [Concomitant]
  7. MONOPRIL [Concomitant]
  8. VICODIN [Concomitant]
  9. RESTORIL [Concomitant]
  10. VALIUM [Concomitant]
  11. IMODIUM [Concomitant]

REACTIONS (3)
  - CHRONIC HEPATITIS [None]
  - HEPATIC CIRRHOSIS [None]
  - HEPATIC STEATOSIS [None]
